FAERS Safety Report 25079749 (Version 1)
Quarter: 2025Q1

REPORT INFORMATION
  Report Type: Spontaneous
  Country: FR (occurrence: FR)
  Receive Date: 20250314
  Receipt Date: 20250314
  Transmission Date: 20250409
  Serious: Yes (Other)
  Sender: ALCON
  Company Number: FR-ALCON LABORATORIES-ALC2025FR001477

PATIENT

DRUGS (1)
  1. BSS PLUS [Suspect]
     Active Substance: CALCIUM CHLORIDE\DEXTROSE\MAGNESIUM CHLORIDE\OXIGLUTATIONE\POTASSIUM CHLORIDE\SODIUM BICARBONATE\SOD
     Indication: Product used for unknown indication
     Route: 065
     Dates: start: 202310

REACTIONS (1)
  - Corneal opacity [Recovered/Resolved]

NARRATIVE: CASE EVENT DATE: 20231001
